FAERS Safety Report 13050591 (Version 1)
Quarter: 2016Q4

REPORT INFORMATION
  Report Type: Spontaneous
  Country: US (occurrence: US)
  Receive Date: 20161221
  Receipt Date: 20161221
  Transmission Date: 20170207
  Serious: Yes (Death)
  Sender: FDA-Public Use
  Company Number: US-JNJFOC-20161217928

PATIENT
  Sex: Male

DRUGS (19)
  1. CARVEDILOL. [Concomitant]
     Active Substance: CARVEDILOL
  2. ONDANSETRON [Concomitant]
     Active Substance: ONDANSETRON
  3. CLOPIDOGREL [Concomitant]
     Active Substance: CLOPIDOGREL BISULFATE
  4. MAGNESIUM OXIDE. [Concomitant]
     Active Substance: MAGNESIUM OXIDE
  5. OXYCODONE [Concomitant]
     Active Substance: OXYCODONE
  6. POLYETHYLENE GLYCOL [Concomitant]
     Active Substance: POLYETHYLENE GLYCOLS
  7. ASPIRIN. [Concomitant]
     Active Substance: ASPIRIN
  8. BACTRIM [Concomitant]
     Active Substance: SULFAMETHOXAZOLE\TRIMETHOPRIM
  9. ACYCLOVIR. [Concomitant]
     Active Substance: ACYCLOVIR
  10. COLACE [Concomitant]
     Active Substance: DOCUSATE SODIUM
  11. OMEPRAZOLE. [Concomitant]
     Active Substance: OMEPRAZOLE
  12. CRESTOR [Concomitant]
     Active Substance: ROSUVASTATIN CALCIUM
  13. ALLOPURINOL. [Concomitant]
     Active Substance: ALLOPURINOL
  14. GABAPENTIN. [Concomitant]
     Active Substance: GABAPENTIN
  15. FLOMAX [Concomitant]
     Active Substance: TAMSULOSIN HYDROCHLORIDE
  16. CENTRUM SILVER [Concomitant]
     Active Substance: MINERALS\VITAMINS
  17. IMBRUVICA [Suspect]
     Active Substance: IBRUTINIB
     Indication: PRODUCT USED FOR UNKNOWN INDICATION
     Route: 048
     Dates: start: 20161104
  18. LISINOPRIL. [Concomitant]
     Active Substance: LISINOPRIL
  19. AMOXICILLIN. [Concomitant]
     Active Substance: AMOXICILLIN

REACTIONS (1)
  - Death [Fatal]
